FAERS Safety Report 10242427 (Version 2)
Quarter: 2014Q2

REPORT INFORMATION
  Report Type: Spontaneous
  Country: GB (occurrence: GB)
  Receive Date: 20140617
  Receipt Date: 20140623
  Transmission Date: 20141212
  Serious: Yes (Disabling, Other)
  Sender: FDA-Public Use
  Company Number: GB-ABBVIE-14K-167-1247930-00

PATIENT
  Age: 39 Year
  Sex: Male

DRUGS (7)
  1. NORVIR [Suspect]
     Indication: HIV INFECTION
     Route: 048
     Dates: start: 20050101
  2. TRUVADA [Suspect]
     Indication: HIV INFECTION
     Route: 048
     Dates: start: 20080101
  3. METHYLPREDNISOLONE [Interacting]
     Indication: PRODUCT USED FOR UNKNOWN INDICATION
  4. BUPRENORPHINE [Concomitant]
     Indication: PAIN
     Dosage: 52.5 UG/HOUR, WEEKLY.
     Route: 065
  5. AMITRIPTYLINE [Concomitant]
     Indication: NEURALGIA
     Dosage: AT NIGHT
     Route: 048
  6. PREGABALIN [Concomitant]
     Indication: NEURALGIA
     Route: 048
  7. DARUNAVIR [Concomitant]
     Indication: HIV INFECTION

REACTIONS (2)
  - Osteonecrosis [Not Recovered/Not Resolved]
  - Drug interaction [Unknown]
